FAERS Safety Report 7229073-8 (Version None)
Quarter: 2011Q1

REPORT INFORMATION
  Report Type: 
  Country: None (occurrence: None)
  Receive Date: 20110117
  Receipt Date: 20110114
  Transmission Date: 20110831
  Serious: Yes (Death)
  Sender: FDA-Public Use
  Company Number: PHHY2011US02348

PATIENT
  Sex: Female
  Weight: 80 kg

DRUGS (1)
  1. EXJADE [Suspect]
     Indication: HAEMATOPOIETIC NEOPLASM
     Dosage: 2500 MG, QD
     Route: 048
     Dates: start: 20090301, end: 20100901

REACTIONS (7)
  - PANCYTOPENIA [None]
  - RENAL FAILURE [None]
  - CARDIAC ARREST [None]
  - ACUTE RESPIRATORY DISTRESS SYNDROME [None]
  - SEPSIS [None]
  - ATRIAL FIBRILLATION [None]
  - RESPIRATORY FAILURE [None]
